FAERS Safety Report 10149553 (Version 2)
Quarter: 2014Q2

REPORT INFORMATION
  Report Type: Spontaneous
  Country: CO (occurrence: CO)
  Receive Date: 20140502
  Receipt Date: 20140502
  Transmission Date: 20141212
  Serious: Yes (Death)
  Sender: FDA-Public Use
  Company Number: CO-PFIZER INC-2014095554

PATIENT
  Age: 79 Year
  Sex: Male

DRUGS (2)
  1. LYRICA [Suspect]
     Indication: PAIN
     Dosage: 150 MG, 1X/DAY
     Route: 048
     Dates: start: 2012
  2. LYRICA [Suspect]
     Indication: SLEEP DISORDER

REACTIONS (4)
  - Death [Fatal]
  - Cough [Not Recovered/Not Resolved]
  - Asthenia [Not Recovered/Not Resolved]
  - Nausea [Not Recovered/Not Resolved]
